FAERS Safety Report 8652843 (Version 16)
Quarter: 2015Q2

REPORT INFORMATION
  Report Type: Spontaneous
  Country: US (occurrence: US)
  Receive Date: 20120706
  Receipt Date: 20150414
  Transmission Date: 20150821
  Serious: Yes (Hospitalization, Other)
  Sender: FDA-Public Use
  Company Number: US-GLAXOSMITHKLINE-A0983267A

PATIENT
  Age: 42 Year
  Sex: Female

DRUGS (7)
  1. FLOLAN [Suspect]
     Active Substance: EPOPROSTENOL SODIUM
     Dosage: 93NG/KG/MIN, CO
     Route: 042
     Dates: start: 20080801
  2. FLOLAN [Suspect]
     Active Substance: EPOPROSTENOL SODIUM
     Indication: COR PULMONALE CHRONIC
     Dosage: 39 NG/KG/MIN CONTINUOUSLY55.5 NG/KG/MIN CONTINUOUSLY89 NG/KG/MIN, 90,000 NG/ML, VIAL 1.5 MG85 ML/DAY
     Route: 042
     Dates: start: 20080723
  3. FLOLAN [Suspect]
     Active Substance: EPOPROSTENOL SODIUM
     Dosage: 93 NG/KG/MIN CONTINUOUS; CONCENTRATION:90,000NG/ML;PUMPRATE:89ML/DAY;VIALSTRENGTH:1.5MG
     Route: 042
  4. FLOLAN [Suspect]
     Active Substance: EPOPROSTENOL SODIUM
     Dosage: 93 NG/KG/MIN (CONCENTRATION 90,000 NG/ML, PUMP RATE 89 ML/DAY, VIAL STRENGTH 1.5 MG), CO
  5. FLOLAN [Suspect]
     Active Substance: EPOPROSTENOL SODIUM
     Indication: PULMONARY ARTERIAL HYPERTENSION
     Dosage: UNK
     Route: 042
     Dates: start: 20080723
  6. FLOLAN [Suspect]
     Active Substance: EPOPROSTENOL SODIUM
     Dosage: UNK
     Route: 042
     Dates: start: 20080723
  7. FLOLAN [Suspect]
     Active Substance: EPOPROSTENOL SODIUM
     Dosage: 93 NG/KG/MIN
     Route: 042

REACTIONS (11)
  - Cholecystectomy [Unknown]
  - Abdominal pain [Unknown]
  - Hospitalisation [Unknown]
  - Right ventricular failure [Recovered/Resolved]
  - Gastrointestinal infection [Recovered/Resolved]
  - Tooth infection [Unknown]
  - Sickle cell anaemia with crisis [Unknown]
  - Adrenal gland operation [Recovered/Resolved]
  - Gallbladder disorder [Unknown]
  - Fluid retention [Recovered/Resolved]
  - Food poisoning [Unknown]

NARRATIVE: CASE EVENT DATE: 20141110
